FAERS Safety Report 23681007 (Version 1)
Quarter: 2024Q1

REPORT INFORMATION
  Report Type: Spontaneous
  Country: CN (occurrence: CN)
  Receive Date: 20240328
  Receipt Date: 20240328
  Transmission Date: 20240410
  Serious: Yes (Other)
  Sender: FDA-Public Use
  Company Number: CN-IRONWOOD PHARMACEUTICALS, INC.-IRWD2024000370

PATIENT
  Age: 59 Year
  Sex: Male

DRUGS (1)
  1. LINACLOTIDE [Suspect]
     Active Substance: LINACLOTIDE
     Indication: Constipation
     Dosage: 290 MICROGRAM, QD, APPROVAL NUMBER: H20190001
     Route: 048
     Dates: start: 20240308, end: 20240308

REACTIONS (2)
  - Pyuria [Recovering/Resolving]
  - Chyluria [Recovering/Resolving]

NARRATIVE: CASE EVENT DATE: 20240308
